FAERS Safety Report 18665399 (Version 1)
Quarter: 2020Q4

REPORT INFORMATION
  Report Type: Spontaneous
  Country: AU (occurrence: AU)
  Receive Date: 20201225
  Receipt Date: 20201225
  Transmission Date: 20210114
  Serious: No
  Sender: FDA-Public Use
  Company Number: AU-LUPIN PHARMACEUTICALS INC.-2020-08613

PATIENT
  Age: 5 Year
  Sex: Female
  Weight: 27.2 kg

DRUGS (1)
  1. TESTOSTERONE. [Suspect]
     Active Substance: TESTOSTERONE
     Indication: PRODUCT USED FOR UNKNOWN INDICATION
     Dosage: UNK (FORMULATION: CREAM)
     Route: 065

REACTIONS (3)
  - Precocious puberty [Not Recovered/Not Resolved]
  - Virilism [Recovering/Resolving]
  - Accidental exposure to product by child [Unknown]
